FAERS Safety Report 8839717 (Version 10)
Quarter: 2014Q2

REPORT INFORMATION
  Report Type: Spontaneous
  Country: ES (occurrence: ES)
  Receive Date: 20121015
  Receipt Date: 20140424
  Transmission Date: 20141212
  Serious: Yes (Death, Hospitalization, Other)
  Sender: FDA-Public Use
  Company Number: ES-CELGENEUS-144-21880-12082311

PATIENT
  Age: 66 Year
  Sex: Male
  Weight: 76.8 kg

DRUGS (15)
  1. REVLIMID [Suspect]
     Indication: PLASMA CELL MYELOMA
     Dosage: 10 MILLIGRAM
     Route: 048
     Dates: start: 20120118, end: 20120724
  2. ELOTUZUMAB [Suspect]
     Indication: PLASMA CELL MYELOMA
     Dosage: 770 MILLIGRAM
     Route: 041
     Dates: start: 20120118, end: 20120718
  3. DEXAMETHASONE [Suspect]
     Indication: PLASMA CELL MYELOMA
     Dosage: 28 MILLIGRAM
     Route: 048
     Dates: start: 20120118, end: 20120801
  4. DEXAMETHASONE [Suspect]
     Dosage: 8 MILLIGRAM
     Route: 041
     Dates: start: 20120118, end: 20120718
  5. PRAVASTATINE [Concomitant]
     Indication: HYPERCHOLESTEROLAEMIA
     Route: 065
     Dates: start: 2007
  6. VORICONAZOLE [Concomitant]
     Indication: PRODUCT USED FOR UNKNOWN INDICATION
     Route: 065
     Dates: start: 20120118
  7. SEPTRIN [Concomitant]
     Indication: INFECTION PROPHYLAXIS
     Route: 065
     Dates: start: 20080102
  8. VALPROIC ACID [Concomitant]
     Indication: CONVULSION
     Route: 065
     Dates: start: 20081010
  9. EPREX [Concomitant]
     Indication: ANAEMIA
     Route: 065
     Dates: start: 20111007
  10. FILGRASTIM [Concomitant]
     Indication: PRODUCT USED FOR UNKNOWN INDICATION
     Route: 065
     Dates: start: 20120229
  11. CALCIUM [Concomitant]
     Indication: CATARACT SUBCAPSULAR
     Route: 065
     Dates: start: 20080325
  12. PANTOPRAZOLE [Concomitant]
     Indication: PRODUCT USED FOR UNKNOWN INDICATION
     Route: 065
     Dates: start: 20080929
  13. ACETYLSALICYLIC ACID [Concomitant]
     Indication: PRODUCT USED FOR UNKNOWN INDICATION
     Route: 065
     Dates: start: 20120118
  14. TADALAFIL [Concomitant]
     Indication: PRODUCT USED FOR UNKNOWN INDICATION
     Route: 065
     Dates: start: 20100118, end: 20120118
  15. CLONAZEPAM [Concomitant]
     Indication: ADVERSE EVENT
     Route: 065
     Dates: start: 20120426, end: 20120426

REACTIONS (3)
  - Gastrointestinal cancer metastatic [Fatal]
  - Microangiopathic haemolytic anaemia [Recovered/Resolved]
  - Microangiopathic haemolytic anaemia [Recovered/Resolved]
